FAERS Safety Report 21682745 (Version 1)
Quarter: 2022Q4

REPORT INFORMATION
  Report Type: Report from Study
  Country: US (occurrence: US)
  Receive Date: 20221205
  Receipt Date: 20221205
  Transmission Date: 20230112
  Serious: Yes (Other)
  Sender: FDA-Public Use
  Company Number: US-BRISTOL-MYERS SQUIBB COMPANY-2022-146255

PATIENT
  Age: 64 Year
  Sex: Male
  Weight: 131.54 kg

DRUGS (1)
  1. REVLIMID [Suspect]
     Active Substance: LENALIDOMIDE
     Indication: Myelodysplastic syndrome
     Dosage: TAKE 1 CAPSULE DAILY
     Route: 048
     Dates: start: 20220308

REACTIONS (3)
  - Influenza [Unknown]
  - White blood cell count decreased [Unknown]
  - Immunodeficiency [Unknown]
